FAERS Safety Report 8342987-0 (Version None)
Quarter: 2012Q2

REPORT INFORMATION
  Report Type: 
  Country: None (occurrence: None)
  Receive Date: 20120508
  Receipt Date: 20120430
  Transmission Date: 20120825
  Serious: Yes (Other)
  Sender: FDA-Public Use
  Company Number: PHEH2012US005325

PATIENT
  Sex: Male
  Weight: 81.633 kg

DRUGS (1)
  1. GLEEVEC [Suspect]
     Indication: CHRONIC MYELOID LEUKAEMIA
     Dosage: 400 MG, DAILY
     Dates: start: 20090411, end: 20100815

REACTIONS (3)
  - MYALGIA [None]
  - PAIN IN EXTREMITY [None]
  - BONE MARROW NECROSIS [None]
